FAERS Safety Report 24981641 (Version 1)
Quarter: 2025Q1

REPORT INFORMATION
  Report Type: Report from Study
  Country: TH (occurrence: TH)
  Receive Date: 20250218
  Receipt Date: 20250218
  Transmission Date: 20250408
  Serious: Yes (Other)
  Sender: BAYER HEALTHCARE PHARMACEUTICALS INC.
  Company Number: TH-BAYER-2025A019406

PATIENT
  Age: 52 Year
  Sex: Male

DRUGS (1)
  1. STIVARGA [Suspect]
     Active Substance: REGORAFENIB MONOHYDRATE
     Indication: Colorectal cancer
     Dosage: 80 MG, QD
     Route: 048
     Dates: start: 202404, end: 20250121

REACTIONS (3)
  - Neoplasm progression [Not Recovered/Not Resolved]
  - Localised infection [Unknown]
  - Purulence [Unknown]

NARRATIVE: CASE EVENT DATE: 20250101
